FAERS Safety Report 4401534-6 (Version None)
Quarter: 2004Q3

REPORT INFORMATION
  Report Type: 
  Country: None (occurrence: None)
  Receive Date: 20040719
  Receipt Date: 20040706
  Transmission Date: 20050211
  Serious: Yes (Life-Threatening, Hospitalization)
  Sender: FDA-Public Use
  Company Number: CA-AMGEN-US082540

PATIENT
  Sex: Male

DRUGS (9)
  1. DARBEPOETIN ALFA [Suspect]
     Indication: ANAEMIA OF MALIGNANT DISEASE
     Route: 058
     Dates: start: 20040526, end: 20040609
  2. PREDNISONE [Concomitant]
     Route: 048
     Dates: start: 20040628
  3. SEPTRA DS [Concomitant]
  4. MAGNESIUM CITRATE [Concomitant]
  5. METOCLOPRAMIDE [Concomitant]
  6. DEXAMETHASONE [Concomitant]
     Route: 042
  7. CYCLOSPORINE [Concomitant]
     Dates: start: 20040611
  8. GANCICLOVIR [Concomitant]
     Route: 042
     Dates: start: 20040615
  9. AMPHOTERICIN B [Concomitant]
     Route: 055

REACTIONS (9)
  - BLOOD GLUCOSE INCREASED [None]
  - CELLULITIS [None]
  - CEREBRAL HAEMORRHAGE [None]
  - FEBRILE NEUTROPENIA [None]
  - HEART RATE DECREASED [None]
  - HYPOTENSION [None]
  - MUCOSAL INFLAMMATION [None]
  - NAUSEA [None]
  - TRANSVERSE SINUS THROMBOSIS [None]
